FAERS Safety Report 8089401-0 (Version None)
Quarter: 2012Q1

REPORT INFORMATION
  Report Type: 
  Country: None (occurrence: None)
  Receive Date: 20120128
  Receipt Date: 20110811
  Transmission Date: 20120608
  Serious: No
  Sender: FDA-Public Use
  Company Number: US-ABBOTT-11P-163-0722651-00

PATIENT
  Sex: Male
  Weight: 102.15 kg

DRUGS (12)
  1. HUMIRA [Suspect]
     Indication: RHEUMATOID ARTHRITIS
     Dates: start: 20110310, end: 20110811
  2. PREDNISONE TAB [Concomitant]
     Indication: RHEUMATOID ARTHRITIS
  3. BENADRYL [Concomitant]
     Indication: PRODUCT USED FOR UNKNOWN INDICATION
  4. LEVOTHROID [Concomitant]
     Indication: PRODUCT USED FOR UNKNOWN INDICATION
  5. FLUOXETINE HYDROCHLORIDE [Concomitant]
     Indication: DEPRESSION
  6. LORAZEPAM [Concomitant]
     Indication: DEPRESSION
  7. GABAPENTIN [Concomitant]
     Indication: MUSCULOSKELETAL STIFFNESS
  8. GABAPENTIN [Concomitant]
     Indication: PAIN
  9. VENLAFAXINE HCL [Concomitant]
     Indication: DEPRESSION
  10. IBUPROFEN [Concomitant]
     Indication: MUSCULOSKELETAL STIFFNESS
  11. IBUPROFEN [Concomitant]
     Indication: PAIN
  12. LEFLUNOMIDE [Concomitant]
     Indication: PRODUCT USED FOR UNKNOWN INDICATION

REACTIONS (9)
  - DRUG INEFFECTIVE [None]
  - FEELING ABNORMAL [None]
  - MUSCULOSKELETAL STIFFNESS [None]
  - PAIN IN EXTREMITY [None]
  - OEDEMA PERIPHERAL [None]
  - STRESS [None]
  - INJECTION SITE PAIN [None]
  - PAIN [None]
  - ARTHRALGIA [None]
